FAERS Safety Report 7353399-0 (Version None)
Quarter: 2011Q1

REPORT INFORMATION
  Report Type: 
  Country: None (occurrence: None)
  Receive Date: 20110315
  Receipt Date: 20110309
  Transmission Date: 20110831
  Serious: Yes (Death, Other)
  Sender: FDA-Public Use
  Company Number: US-GENZYME-CAMP-1001341

PATIENT
  Age: 73 Year

DRUGS (5)
  1. CAMPATH [Suspect]
     Indication: STEM CELL TRANSPLANT
     Dosage: 20 MG, QDX5
     Route: 042
  2. FILGRASTIM [Concomitant]
     Indication: NEUTROPENIA
     Dosage: 5 MCG/KG, UNK
     Route: 065
  3. PROLEUKIN [Concomitant]
     Indication: DECREASED IMMUNE RESPONSIVENESS
     Dosage: 1 MU/M2, QDX5 FOR 4 WEEKS EVERY 6 WEEKS FOR 1 CYCLE
     Route: 058
  4. FLUDARA [Suspect]
     Indication: STEM CELL TRANSPLANT
     Dosage: 30 MG/M2, QD
     Route: 065
  5. CYCLOPHOSPHAMIDE [Suspect]
     Indication: STEM CELL TRANSPLANT
     Dosage: 500 MG/M2, QD
     Route: 065

REACTIONS (4)
  - CYTOMEGALOVIRUS INFECTION [None]
  - ACUTE MYELOID LEUKAEMIA [None]
  - DIARRHOEA [None]
  - FATIGUE [None]
